FAERS Safety Report 19763144 (Version 1)
Quarter: 2021Q3

REPORT INFORMATION
  Report Type: Spontaneous
  Country: US (occurrence: US)
  Receive Date: 20210826
  Receipt Date: 20210826
  Transmission Date: 20211014
  Serious: Yes (Hospitalization, Other)
  Sender: FDA-Public Use
  Company Number: None

PATIENT
  Age: 51 Year
  Sex: Male
  Weight: 55.2 kg

DRUGS (16)
  1. PACLITAXEL. [Suspect]
     Active Substance: PACLITAXEL
  2. ZOFRAN [Concomitant]
     Active Substance: ONDANSETRON HYDROCHLORIDE
  3. COMPAZINE [Concomitant]
     Active Substance: PROCHLORPERAZINE MALEATE
  4. TEMOZOLOMIDE 140 MG [Suspect]
     Active Substance: TEMOZOLOMIDE
     Dosage: DAYS 1?21 28 DAY CYCLE
     Route: 048
     Dates: start: 20210422, end: 20210709
  5. FAMOTIDINE. [Concomitant]
     Active Substance: FAMOTIDINE
  6. CARBOPLATIN. [Suspect]
     Active Substance: CARBOPLATIN
     Indication: GASTROINTESTINAL STROMAL TUMOUR
  7. DICLOFENAC (VOLTAREN) [Concomitant]
  8. METOPROLOLTARTRATE (LOPRESSOR) [Concomitant]
  9. ZOFRAN ODT [Concomitant]
     Active Substance: ONDANSETRON HYDROCHLORIDE
  10. ATIVAN [Concomitant]
     Active Substance: LORAZEPAM
  11. METHYLPHENIDATO (RITALIN) [Concomitant]
  12. ATIVAN [Concomitant]
     Active Substance: LORAZEPAM
  13. PYRIDIUM [Concomitant]
     Active Substance: PHENAZOPYRIDINE
  14. LIDOCAINE (LIDOERM) [Concomitant]
  15. VERAPAMIL [Concomitant]
     Active Substance: VERAPAMIL HYDROCHLORIDE
  16. HYDROMORPHONE  (DTLAUDID) [Concomitant]

REACTIONS (4)
  - Diarrhoea [None]
  - Fatigue [None]
  - Thrombocytopenia [None]
  - Dizziness [None]

NARRATIVE: CASE EVENT DATE: 20200123
